FAERS Safety Report 19039270 (Version 1)
Quarter: 2021Q1

REPORT INFORMATION
  Report Type: Spontaneous
  Country: JP (occurrence: JP)
  Receive Date: 20210322
  Receipt Date: 20210322
  Transmission Date: 20210420
  Serious: Yes (Hospitalization, Other)
  Sender: FDA-Public Use
  Company Number: JP-GLAXOSMITHKLINE-JP2021JPN062872

PATIENT
  Age: 14 Year
  Sex: Female

DRUGS (1)
  1. VALACICLOVIR [Suspect]
     Active Substance: VALACYCLOVIR HYDROCHLORIDE
     Indication: HERPES ZOSTER
     Dosage: UNK
     Route: 048

REACTIONS (7)
  - Vomiting [Unknown]
  - Generalised oedema [Unknown]
  - Oliguria [Unknown]
  - Nephropathy toxic [Unknown]
  - Back pain [Unknown]
  - Headache [Unknown]
  - Renal tubular disorder [Unknown]
